FAERS Safety Report 9435413 (Version 2)
Quarter: 2013Q3

REPORT INFORMATION
  Report Type: Spontaneous
  Country: JP (occurrence: JP)
  Receive Date: 20130801
  Receipt Date: 20130828
  Transmission Date: 20140515
  Serious: Yes (Other)
  Sender: FDA-Public Use
  Company Number: JP-SANOFI-AVENTIS-2013SA076217

PATIENT
  Sex: Male

DRUGS (2)
  1. ONETAXOTERE [Suspect]
     Indication: PROSTATE CANCER
     Route: 042
     Dates: start: 20130527, end: 20130708
  2. DECADRON [Concomitant]

REACTIONS (1)
  - Visual acuity reduced [Recovering/Resolving]
